FAERS Safety Report 12262905 (Version 5)
Quarter: 2024Q4

REPORT INFORMATION
  Report Type: Spontaneous
  Country: DE (occurrence: DE)
  Receive Date: 20160413
  Receipt Date: 20241218
  Transmission Date: 20250114
  Serious: Yes (Life-Threatening, Hospitalization, Other)
  Sender: SANOFI AVENTIS
  Company Number: None

PATIENT
  Age: 56 Year
  Sex: Female

DRUGS (4)
  1. DOCETAXEL [Suspect]
     Active Substance: DOCETAXEL
     Indication: Bronchial carcinoma
     Dosage: 75 MG/M2
     Route: 042
     Dates: start: 20160223
  2. NINTEDANIB [Suspect]
     Active Substance: NINTEDANIB
     Indication: Bronchial carcinoma
     Dosage: 400 MG, QD
     Route: 048
     Dates: start: 20160203, end: 20160222
  3. ZOLEDRONIC ACID [Concomitant]
     Active Substance: ZOLEDRONIC ACID
     Dosage: 4 MG, QM ( 4 MG MILLGRAM(S) EVERY 4 WEEKS)
     Route: 042
  4. LEVOTHYROXINE [Concomitant]
     Active Substance: LEVOTHYROXINE
     Indication: Hypothyroidism
     Dosage: 125 UG, QD
     Route: 048

REACTIONS (3)
  - Gastrointestinal necrosis [Unknown]
  - Intestinal ischaemia [Unknown]
  - Intestinal haemorrhage [Unknown]

NARRATIVE: CASE EVENT DATE: 20160228
